FAERS Safety Report 19791129 (Version 2)
Quarter: 2021Q4

REPORT INFORMATION
  Report Type: Report from Study
  Country: US (occurrence: US)
  Receive Date: 20210906
  Receipt Date: 20211102
  Transmission Date: 20220303
  Serious: Yes (Hospitalization, Other)
  Sender: FDA-Public Use
  Company Number: US-BRISTOL-MYERS SQUIBB COMPANY-BMS-2021-084988

PATIENT
  Age: 73 Year
  Sex: Male
  Weight: 125 kg

DRUGS (17)
  1. ELOTUZUMAB [Suspect]
     Active Substance: ELOTUZUMAB
     Indication: Plasma cell myeloma
     Dosage: 1250 MILLIGRAM
     Route: 042
     Dates: start: 20210730, end: 20210730
  2. DEXAMETHASONE [Suspect]
     Active Substance: DEXAMETHASONE
     Indication: Plasma cell myeloma
     Dosage: 112 MILLIGRAM
     Route: 048
     Dates: start: 20210730, end: 20210820
  3. ACETAMINOPHEN [Concomitant]
     Active Substance: ACETAMINOPHEN
     Indication: Prophylaxis
     Dosage: 650 MILLIGRAM, DRUG INTERVAL 1 DAY
     Route: 048
     Dates: start: 20210730, end: 20210730
  4. ASPIRIN [Concomitant]
     Active Substance: ASPIRIN
     Indication: Prophylaxis
     Dosage: 81 MILLIGRAM, DRUG INTERVAL 1 DAY
     Route: 048
     Dates: start: 20160120
  5. ATORVASTATIN [Concomitant]
     Active Substance: ATORVASTATIN
     Indication: Hyperlipidaemia
     Dosage: 40 MILLIGRAM, DRUG INTERVAL 1 DAY
     Route: 048
     Dates: start: 20180123
  6. BRIMONIDINE [Concomitant]
     Active Substance: BRIMONIDINE TARTRATE
     Indication: Intraocular pressure increased
     Dosage: 0.15 PERCENT, DRUG INTERVAL 1 DAY
     Route: 047
     Dates: start: 20151012
  7. CALCIUM CARBONATE [Concomitant]
     Active Substance: CALCIUM CARBONATE
     Indication: Prophylaxis
     Dosage: 1 TAB, DRUG INTERVAL 1 DAY
     Route: 048
     Dates: start: 20171011
  8. CHOLECALCIFEROL [Concomitant]
     Active Substance: CHOLECALCIFEROL
     Indication: Prophylaxis
     Dosage: 1 PATCH, DRUG INTERVAL 1 DAY
     Route: 048
     Dates: start: 20160713
  9. DIPHENHYDRAMINE [Concomitant]
     Active Substance: DIPHENHYDRAMINE
     Indication: Prophylaxis
     Dosage: 50 MILLIGRAM, DRUG INTERVAL 1 DAY
     Route: 048
     Dates: start: 20210730, end: 20210730
  10. FAMOTIDINE [Concomitant]
     Active Substance: FAMOTIDINE
     Indication: Prophylaxis
     Dosage: 20 MILLIGRAM, DRUG INTERVAL 1 DAY
     Route: 058
     Dates: start: 20210730, end: 20210730
  11. FENTANYL [Concomitant]
     Active Substance: FENTANYL
     Indication: Pain
     Dosage: 2 PATCH, DRUG INTERVAL 3 DAYS
     Route: 062
     Dates: start: 20210707
  12. FLUOROURACIL [Concomitant]
     Active Substance: FLUOROURACIL
     Indication: Rash
     Dosage: 0.5 PERCENT, DRUG INTERVAL 1 DAY
     Route: 061
     Dates: start: 20190403
  13. GABAPENTIN [Concomitant]
     Active Substance: GABAPENTIN
     Indication: Neuropathy peripheral
     Dosage: 100 MILLIGRAM, DRUG INTERVAL 1 DAY
     Route: 048
     Dates: start: 20171031
  14. LATANOPROST [Concomitant]
     Active Substance: LATANOPROST
     Indication: Intraocular pressure increased
     Dosage: 0.0005 MG, DRUG INTERVAL 1 DAY
     Route: 047
     Dates: start: 20150218
  15. LOPERAMIDE HYDROCHLORIDE [Concomitant]
     Active Substance: LOPERAMIDE HYDROCHLORIDE
     Indication: Diarrhoea
     Dosage: 2 MILLIGRAM
     Route: 048
     Dates: start: 20200814
  16. SERTRALINE [Concomitant]
     Active Substance: SERTRALINE HYDROCHLORIDE
     Indication: Depression
     Dosage: 100 MILLIGRAM, DRUG INTERVAL 1 DAY
     Route: 048
     Dates: start: 20171011
  17. TIMOLOL [Concomitant]
     Active Substance: TIMOLOL
     Indication: Intraocular pressure increased
     Dosage: 0.2 PERCENT, DRUG INTERVAL 1 DAY
     Route: 047
     Dates: start: 20150218

REACTIONS (2)
  - Embolism [Recovered/Resolved]
  - Atrial fibrillation [Recovered/Resolved]

NARRATIVE: CASE EVENT DATE: 20210812
